FAERS Safety Report 5360120-4 (Version None)
Quarter: 2007Q2

REPORT INFORMATION
  Report Type: 
  Country: None (occurrence: None)
  Receive Date: 20070618
  Receipt Date: 20070608
  Transmission Date: 20071010
  Serious: Yes (Other)
  Sender: FDA-Public Use
  Company Number: PHNU2007DE01831

PATIENT
  Sex: Male
  Weight: 81 kg

DRUGS (7)
  1. DIOVAN [Suspect]
     Indication: HYPERTENSION
     Dosage: 1 DF, QD
     Route: 048
     Dates: start: 20060404, end: 20061201
  2. BISOPROLOL FUMARATE [Concomitant]
     Indication: HYPERTENSION
     Dosage: 2.5 MG/DAY
     Route: 048
     Dates: end: 20061130
  3. BISOPROLOL FUMARATE [Concomitant]
     Dosage: 0.5 DF, QD
     Route: 048
     Dates: start: 20060630
  4. AMLODIPINE [Concomitant]
     Indication: HYPERTENSION
     Dosage: 5 MG, QD
     Route: 048
     Dates: start: 20061130
  5. CITALOPRAM HYDROBROMIDE [Concomitant]
     Indication: CORONARY ARTERY DISEASE
     Route: 048
     Dates: start: 20060404
  6. ACETYLSALICYLIC ACID SRT [Concomitant]
     Indication: CORONARY ARTERY DISEASE
     Route: 048
  7. RIFUN [Concomitant]
     Indication: GASTRIC DISORDER
     Route: 048

REACTIONS (1)
  - DEPRESSION [None]
